FAERS Safety Report 26111707 (Version 1)
Quarter: 2025Q4

REPORT INFORMATION
  Report Type: Spontaneous
  Country: US (occurrence: US)
  Receive Date: 20251202
  Receipt Date: 20251202
  Transmission Date: 20260117
  Serious: No
  Sender: STRIDES
  Company Number: US-STRIDES ARCOLAB LIMITED-2025SP011933

PATIENT
  Age: 45 Year
  Sex: Male

DRUGS (4)
  1. METOCLOPRAMIDE [Suspect]
     Active Substance: METOCLOPRAMIDE
     Indication: Nausea
     Dosage: 5 MILLIGRAM
     Route: 065
  2. COBIMETINIB [Concomitant]
     Active Substance: COBIMETINIB
     Indication: Craniopharyngioma
     Dosage: 60 MILLIGRAM, QD
     Route: 048
  3. VEMURAFENIB [Concomitant]
     Active Substance: VEMURAFENIB
     Indication: Craniopharyngioma
     Dosage: 960 MILLIGRAM, BID
     Route: 048
  4. CLINDAMYCIN [Concomitant]
     Active Substance: CLINDAMYCIN
     Indication: Prophylaxis
     Dosage: UNK
     Route: 065

REACTIONS (1)
  - Drug ineffective for unapproved indication [Unknown]
